FAERS Safety Report 19985370 (Version 1)
Quarter: 2021Q4

REPORT INFORMATION
  Report Type: Spontaneous
  Country: US (occurrence: US)
  Receive Date: 20211022
  Receipt Date: 20211022
  Transmission Date: 20220303
  Serious: Yes (Hospitalization)
  Sender: FDA-Public Use
  Company Number: None

PATIENT
  Sex: Male

DRUGS (7)
  1. AUSTEDO [Suspect]
     Active Substance: DEUTETRABENAZINE
     Indication: Huntington^s disease
     Route: 048
     Dates: start: 20191127
  2. CYCLOBENZAPRINE [Concomitant]
     Active Substance: CYCLOBENZAPRINE
  3. DIAZEPAM [Concomitant]
     Active Substance: DIAZEPAM
  4. LIDOCAINE [Concomitant]
     Active Substance: LIDOCAINE
  5. LORAZEPAM [Concomitant]
     Active Substance: LORAZEPAM
  6. NAPROXEN [Concomitant]
     Active Substance: NAPROXEN
  7. TERAZOSIN [Concomitant]
     Active Substance: TERAZOSIN HYDROCHLORIDE

REACTIONS (4)
  - Complication associated with device [None]
  - Device breakage [None]
  - Tendon rupture [None]
  - Hip arthroplasty [None]
